FAERS Safety Report 24422005 (Version 1)
Quarter: 2024Q4

REPORT INFORMATION
  Report Type: Spontaneous
  Country: CH (occurrence: CH)
  Receive Date: 20241010
  Receipt Date: 20241010
  Transmission Date: 20250115
  Serious: Yes (Life-Threatening, Hospitalization)
  Sender: STRIDES
  Company Number: CH-STRIDES ARCOLAB LIMITED-2024SP012925

PATIENT
  Age: 31 Year
  Sex: Female

DRUGS (29)
  1. PHENOBARBITAL [Suspect]
     Active Substance: PHENOBARBITAL
     Indication: Status epilepticus
     Dosage: UNK
     Route: 065
  2. PHENOBARBITAL [Suspect]
     Active Substance: PHENOBARBITAL
     Dosage: UNK (DOSE REDUCED)
     Route: 065
  3. LACOSAMIDE [Suspect]
     Active Substance: LACOSAMIDE
     Indication: Status epilepticus
     Dosage: UNK
     Route: 065
  4. LACOSAMIDE [Suspect]
     Active Substance: LACOSAMIDE
     Dosage: UNK (DOSE REDUCED)
     Route: 065
  5. BRIVARACETAM [Suspect]
     Active Substance: BRIVARACETAM
     Indication: Status epilepticus
     Dosage: UNK
     Route: 065
  6. BRIVARACETAM [Suspect]
     Active Substance: BRIVARACETAM
     Dosage: UNK (DOSE REDUCED)
     Route: 065
  7. CLONAZEPAM [Suspect]
     Active Substance: CLONAZEPAM
     Indication: Status epilepticus
     Dosage: UNK
     Route: 065
  8. CLONAZEPAM [Suspect]
     Active Substance: CLONAZEPAM
     Dosage: UNK (DOSE REDUCED)
     Route: 065
  9. KETAMINE [Suspect]
     Active Substance: KETAMINE
     Indication: Status epilepticus
     Dosage: UNK
     Route: 065
  10. KETAMINE [Suspect]
     Active Substance: KETAMINE
     Dosage: UNK (DOSE REDUCED)
     Route: 065
  11. PERAMPANEL [Suspect]
     Active Substance: PERAMPANEL
     Indication: Status epilepticus
     Dosage: UNK
     Route: 065
  12. PERAMPANEL [Suspect]
     Active Substance: PERAMPANEL
     Dosage: UNK (DOSE REDUCED)
     Route: 065
  13. PROPOFOL [Suspect]
     Active Substance: PROPOFOL
     Indication: Status epilepticus
     Dosage: UNK
     Route: 065
  14. PROPOFOL [Suspect]
     Active Substance: PROPOFOL
     Dosage: UNK (DOSE REDUCED)
     Route: 065
  15. THIOPENTAL [Suspect]
     Active Substance: THIOPENTAL
     Indication: Status epilepticus
     Dosage: UNK
     Route: 065
  16. THIOPENTAL [Suspect]
     Active Substance: THIOPENTAL
     Dosage: UNK (DOSE REDUCED)
     Route: 065
  17. SEVOFLURANE [Suspect]
     Active Substance: SEVOFLURANE
     Indication: Status epilepticus
     Dosage: UNK, RESPIRATORY (INHALATION)
  18. SEVOFLURANE [Suspect]
     Active Substance: SEVOFLURANE
     Dosage: UNK (DOSE REDUCED), RESPIRATORY (INHALATION)
  19. LEVETIRACETAM [Concomitant]
     Active Substance: LEVETIRACETAM
     Indication: Status epilepticus
     Dosage: 1250 MILLIGRAM, BID
     Route: 042
  20. LEVETIRACETAM [Concomitant]
     Active Substance: LEVETIRACETAM
     Indication: Evidence based treatment
     Dosage: 1500 MILLIGRAM, BID
     Route: 042
  21. MIDAZOLAM [Concomitant]
     Active Substance: MIDAZOLAM
     Indication: Status epilepticus
     Dosage: 5 MILLIGRAM, EVERY HOUR
     Route: 042
  22. MIDAZOLAM [Concomitant]
     Active Substance: MIDAZOLAM
     Dosage: 20 MILLIGRAM
     Route: 042
  23. VALPROATE SODIUM [Concomitant]
     Active Substance: VALPROATE SODIUM
     Indication: Status epilepticus
     Dosage: 300 MILLIGRAM, QID
     Route: 042
  24. ACYCLOVIR [Concomitant]
     Active Substance: ACYCLOVIR
     Indication: Evidence based treatment
     Dosage: UNK
     Route: 065
  25. ACYCLOVIR [Concomitant]
     Active Substance: ACYCLOVIR
     Indication: Tick-borne viral encephalitis
  26. CEFTRIAXONE [Concomitant]
     Active Substance: CEFTRIAXONE
     Indication: Evidence based treatment
     Dosage: UNK
     Route: 065
  27. CEFTRIAXONE [Concomitant]
     Active Substance: CEFTRIAXONE
     Indication: Tick-borne viral encephalitis
  28. DEXAMETHASONE [Concomitant]
     Active Substance: DEXAMETHASONE
     Indication: Evidence based treatment
     Dosage: UNK
     Route: 065
  29. DEXAMETHASONE [Concomitant]
     Active Substance: DEXAMETHASONE
     Indication: Tick-borne viral encephalitis

REACTIONS (2)
  - Rebound effect [Recovered/Resolved]
  - Epilepsy [Recovered/Resolved]
